FAERS Safety Report 9099233 (Version 1)
Quarter: 2013Q1

REPORT INFORMATION
  Report Type: Spontaneous
  Country: US (occurrence: US)
  Receive Date: 20130214
  Receipt Date: 20130214
  Transmission Date: 20140127
  Serious: Yes (Hospitalization)
  Sender: FDA-Public Use
  Company Number: US-PFIZER INC-2013049044

PATIENT
  Age: 58 Year
  Sex: Male

DRUGS (2)
  1. ZITHROMAX [Suspect]
     Indication: PARANASAL SINUS HYPERSECRETION
     Dosage: UNK
  2. LEVAQUIN [Suspect]
     Indication: PARANASAL SINUS HYPERSECRETION
     Dosage: UNK

REACTIONS (2)
  - Paranasal sinus hypersecretion [Unknown]
  - Drug ineffective [Unknown]
